FAERS Safety Report 25163574 (Version 1)
Quarter: 2025Q2

REPORT INFORMATION
  Report Type: Spontaneous
  Country: CA (occurrence: CA)
  Receive Date: 20250405
  Receipt Date: 20250405
  Transmission Date: 20250716
  Serious: Yes (Other)
  Sender: ACCORD
  Company Number: None

PATIENT
  Age: 51 Year
  Sex: Female

DRUGS (8)
  1. METHOTREXATE SODIUM [Suspect]
     Active Substance: METHOTREXATE SODIUM
     Indication: Product used for unknown indication
     Route: 058
  2. RISEDRONATE SODIUM [Concomitant]
     Active Substance: RISEDRONATE SODIUM
  3. VITAMIN D [Concomitant]
     Active Substance: VITAMIN D NOS
     Route: 065
  4. ENBREL [Concomitant]
     Active Substance: ETANERCEPT
     Indication: Psoriatic arthropathy
  5. PANTOPRAZOLE SODIUM [Concomitant]
     Active Substance: PANTOPRAZOLE SODIUM
  6. PREDNISONE [Concomitant]
     Active Substance: PREDNISONE
  7. PREDNISONE [Concomitant]
     Active Substance: PREDNISONE
  8. PREDNISONE [Concomitant]
     Active Substance: PREDNISONE

REACTIONS (2)
  - Drug ineffective [Recovered/Resolved]
  - Vertigo [Recovered/Resolved]
